FAERS Safety Report 22121555 (Version 1)
Quarter: 2023Q1

REPORT INFORMATION
  Report Type: Spontaneous
  Country: US (occurrence: None)
  Receive Date: 20230321
  Receipt Date: 20230321
  Transmission Date: 20230418
  Serious: No
  Sender: FDA-Public Use
  Company Number: None

PATIENT
  Age: 17 Year
  Sex: Female
  Weight: 50.85 kg

DRUGS (1)
  1. DIPHENHYDRAMINE [Suspect]
     Active Substance: DIPHENHYDRAMINE
     Dosage: FREQUENCY : ONCE;?
     Route: 042
     Dates: start: 20230318, end: 20230318

REACTIONS (5)
  - Burning sensation [None]
  - Throat irritation [None]
  - Dyspnoea [None]
  - Panic disorder [None]
  - Heart rate increased [None]

NARRATIVE: CASE EVENT DATE: 20230318
